FAERS Safety Report 5367741-3 (Version None)
Quarter: 2007Q2

REPORT INFORMATION
  Report Type: 
  Country: None (occurrence: None)
  Receive Date: 20070622
  Receipt Date: 20070413
  Transmission Date: 20071010
  Serious: No
  Sender: FDA-Public Use
  Company Number: US-ASTRAZENECA-2007UW04226

PATIENT
  Age: 76 Year
  Sex: Female
  Weight: 61.2 kg

DRUGS (8)
  1. PULMICORT RESPULES [Suspect]
     Indication: CHRONIC OBSTRUCTIVE PULMONARY DISEASE
     Dosage: 05MG/2ML
     Route: 055
     Dates: start: 20061219, end: 20061220
  2. XOPENEX [Concomitant]
     Indication: CHRONIC OBSTRUCTIVE PULMONARY DISEASE
     Dosage: 1.25MG
     Route: 055
  3. ATENOLOL [Concomitant]
     Indication: ATRIAL FIBRILLATION
     Route: 048
  4. LEXAPRO [Concomitant]
  5. ACTONEL [Concomitant]
  6. CALTRATE D [Concomitant]
  7. MULTI-VITAMIN [Concomitant]
  8. ATROVENT [Concomitant]
     Indication: CHRONIC OBSTRUCTIVE PULMONARY DISEASE
     Route: 055

REACTIONS (3)
  - DYSPHONIA [None]
  - LARYNGITIS [None]
  - WHEEZING [None]
